FAERS Safety Report 23137016 (Version 4)
Quarter: 2024Q1

REPORT INFORMATION
  Report Type: Spontaneous
  Country: FR (occurrence: FR)
  Receive Date: 20231102
  Receipt Date: 20240325
  Transmission Date: 20240410
  Serious: Yes (Death, Other)
  Sender: FDA-Public Use
  Company Number: FR-JNJFOC-20231029348

PATIENT
  Age: 70 Year
  Sex: Female
  Weight: 52 kg

DRUGS (4)
  1. TECVAYLI [Suspect]
     Active Substance: TECLISTAMAB-CQYV
     Indication: Plasma cell myeloma
     Dosage: 3 VIALS OF 10 MG?FIRST DOSE
     Route: 065
     Dates: start: 20231009
  2. TECVAYLI [Suspect]
     Active Substance: TECLISTAMAB-CQYV
     Dosage: SECOND DOSE
     Route: 065
     Dates: start: 20231012
  3. TECVAYLI [Suspect]
     Active Substance: TECLISTAMAB-CQYV
     Dosage: THIRD DOSE
     Route: 065
     Dates: start: 20231016
  4. TECVAYLI [Suspect]
     Active Substance: TECLISTAMAB-CQYV
     Route: 065
     Dates: start: 20231015, end: 20231113

REACTIONS (6)
  - Plasma cell myeloma [Fatal]
  - Hallucination [Unknown]
  - Cytokine release syndrome [Unknown]
  - Immune effector cell-associated neurotoxicity syndrome [Unknown]
  - Intercepted product prescribing error [Unknown]
  - Off label use [Unknown]

NARRATIVE: CASE EVENT DATE: 20231001
